FAERS Safety Report 4497280-3 (Version None)
Quarter: 2004Q4

REPORT INFORMATION
  Report Type: 
  Country: None (occurrence: None)
  Receive Date: 20041110
  Receipt Date: 20041029
  Transmission Date: 20050328
  Serious: Yes (Death, Life-Threatening, Hospitalization, Disabling, Other)
  Sender: FDA-Public Use
  Company Number: JP-JNJFOC-20040902762

PATIENT
  Sex: Female

DRUGS (7)
  1. FENTANYL-TTS [Suspect]
     Indication: CANCER PAIN
     Route: 062
     Dates: start: 20030825, end: 20031016
  2. BENZODIAZEPINE [Concomitant]
     Route: 049
  3. HYDROXIDINE [Concomitant]
     Route: 049
  4. RITALIN [Concomitant]
     Route: 049
  5. RINDERON [Concomitant]
     Indication: ANOREXIA
     Route: 049
  6. RINDERON [Concomitant]
     Route: 049
  7. BROTIZOLAM [Concomitant]
     Route: 049

REACTIONS (16)
  - ALANINE AMINOTRANSFERASE INCREASED [None]
  - ASPARTATE AMINOTRANSFERASE INCREASED [None]
  - BLOOD BILIRUBIN INCREASED [None]
  - CACHEXIA [None]
  - CONSTIPATION [None]
  - DECUBITUS ULCER [None]
  - DISEASE RECURRENCE [None]
  - DISORIENTATION [None]
  - DISSEMINATED INTRAVASCULAR COAGULATION [None]
  - HERPES ZOSTER [None]
  - JAUNDICE [None]
  - LIVER ABSCESS [None]
  - MALIGNANT NEOPLASM PROGRESSION [None]
  - NAUSEA [None]
  - PANCREATIC CARCINOMA [None]
  - WHITE BLOOD CELL COUNT INCREASED [None]
